FAERS Safety Report 6619859-2 (Version None)
Quarter: 2010Q1

REPORT INFORMATION
  Report Type: 
  Country: None (occurrence: None)
  Receive Date: 20100223
  Receipt Date: 20091119
  Transmission Date: 20100710
  Serious: No
  Sender: FDA-Public Use
  Company Number: 8045825

PATIENT
  Sex: Female

DRUGS (4)
  1. CERTOLIZUIMAB PEGOL (UCB, INC) [Suspect]
     Dosage: SUBCUTANEOUS
     Route: 058
  2. BENTYL [Concomitant]
  3. IMODIUM [Concomitant]
  4. TYLENOL-500 [Concomitant]

REACTIONS (3)
  - COUGH [None]
  - EXPOSURE TO COMMUNICABLE DISEASE [None]
  - VISION BLURRED [None]
